FAERS Safety Report 25243885 (Version 2)
Quarter: 2025Q2

REPORT INFORMATION
  Report Type: Spontaneous
  Country: US (occurrence: US)
  Receive Date: 20250428
  Receipt Date: 20250505
  Transmission Date: 20250717
  Serious: Yes (Life-Threatening, Hospitalization, Other)
  Sender: ALKEM
  Company Number: NL-ALKEM LABORATORIES LIMITED-NL-ALKEM-2025-04250

PATIENT
  Age: 48 Year
  Sex: Male

DRUGS (1)
  1. OXYCODONE HYDROCHLORIDE [Suspect]
     Active Substance: OXYCODONE HYDROCHLORIDE
     Indication: Product used for unknown indication
     Route: 048

REACTIONS (11)
  - Decerebrate posture [Unknown]
  - Pyrexia [Unknown]
  - Tachypnoea [Unknown]
  - Hypertension [Unknown]
  - Toxic leukoencephalopathy [Unknown]
  - Rhabdomyolysis [Unknown]
  - Paroxysmal sympathetic hyperactivity [Unknown]
  - Brain injury [Unknown]
  - Loss of consciousness [Unknown]
  - Tachycardia [Unknown]
  - Overdose [Unknown]
